FAERS Safety Report 5466928-9 (Version None)
Quarter: 2007Q3

REPORT INFORMATION
  Report Type: 
  Country: None (occurrence: None)
  Receive Date: 20070921
  Receipt Date: 20070921
  Transmission Date: 20080115
  Serious: No
  Sender: FDA-Public Use
  Company Number: None

PATIENT
  Sex: Female

DRUGS (1)
  1. TARCEVA [Suspect]
     Dosage: 150MG QD PO
     Route: 048
     Dates: start: 20070730, end: 20070919

REACTIONS (3)
  - ANOREXIA [None]
  - FATIGUE [None]
  - RASH [None]
